FAERS Safety Report 13263657 (Version 1)
Quarter: 2017Q1

REPORT INFORMATION
  Report Type: Spontaneous
  Country: US (occurrence: US)
  Receive Date: 20170221
  Receipt Date: 20170221
  Transmission Date: 20170428
  Serious: Yes (Disabling, Other)
  Sender: FDA-Public Use
  Company Number: None

PATIENT
  Sex: Female
  Weight: 142.6 kg

DRUGS (11)
  1. TRI-PREVIFEM [Concomitant]
     Active Substance: ETHINYL ESTRADIOL\NORGESTIMATE
  2. DULOXETINE. [Suspect]
     Active Substance: DULOXETINE
     Indication: ANXIETY
     Dosage: ?          QUANTITY:180 CAPSULE(S);?
     Route: 048
     Dates: start: 20160831, end: 20161130
  3. LOSARTAN/HCTZ [Concomitant]
     Active Substance: HYDROCHLOROTHIAZIDE\LOSARTAN
  4. METOPROLOL TARTRATE. [Concomitant]
     Active Substance: METOPROLOL TARTRATE
  5. PAROXETINE. [Concomitant]
     Active Substance: PAROXETINE
  6. VITAMIN C [Concomitant]
     Active Substance: ASCORBIC ACID
  7. DULOXETINE. [Suspect]
     Active Substance: DULOXETINE
     Indication: DEPRESSION
     Dosage: ?          QUANTITY:180 CAPSULE(S);?
     Route: 048
     Dates: start: 20160831, end: 20161130
  8. LORAZEPAM. [Concomitant]
     Active Substance: LORAZEPAM
  9. TRAZODONE [Concomitant]
     Active Substance: TRAZODONE HYDROCHLORIDE
  10. PANTOPRAZOLE [Concomitant]
     Active Substance: PANTOPRAZOLE SODIUM
  11. WOMEN^S ONE A DAY MULTIVITAMIN [Concomitant]

REACTIONS (13)
  - Paraesthesia [None]
  - Impaired work ability [None]
  - Suicidal ideation [None]
  - Insomnia [None]
  - Anger [None]
  - Withdrawal syndrome [None]
  - Headache [None]
  - Depression [None]
  - Anxiety [None]
  - Nausea [None]
  - Fatigue [None]
  - Myalgia [None]
  - Confusional state [None]
